FAERS Safety Report 11360192 (Version 1)
Quarter: 2015Q3

REPORT INFORMATION
  Report Type: Spontaneous
  Country: GB (occurrence: GB)
  Receive Date: 20150810
  Receipt Date: 20150810
  Transmission Date: 20151125
  Serious: Yes (Other)
  Sender: FDA-Public Use
  Company Number: GB-TEVA-583711ACC

PATIENT
  Age: 92 Year
  Sex: Female
  Weight: 58 kg

DRUGS (13)
  1. LACTULOSE. [Concomitant]
     Active Substance: LACTULOSE
     Dosage: 30 ML DAILY; AS NEEDED
     Dates: start: 20141219
  2. BIMATOPROST. [Concomitant]
     Active Substance: BIMATOPROST
     Dosage: 1 GTT DAILY; LEFT EYE, AT NIGHT.
     Route: 047
     Dates: start: 20150402
  3. CITALOPRAM [Concomitant]
     Active Substance: CITALOPRAM HYDROBROMIDE
     Dosage: 1 DOSAGE FORMS DAILY; MORNING
     Dates: start: 20141029
  4. OMEPRAZOLE. [Concomitant]
     Active Substance: OMEPRAZOLE
     Dosage: 1 DOSAGE FORMS DAILY;
     Dates: start: 20150402
  5. DORZOLAMIDE HYDROCHLORIDE. [Suspect]
     Active Substance: DORZOLAMIDE HYDROCHLORIDE
     Dates: start: 20141029
  6. BRIMONIDINE TARTRATE. [Concomitant]
     Active Substance: BRIMONIDINE TARTRATE
     Dosage: 1 GTT DAILY; TO BOTH EYES
     Route: 047
     Dates: start: 20150722
  7. QUININE [Concomitant]
     Active Substance: QUININE
     Dosage: AS DIRECTED.
     Dates: start: 20141029
  8. FOLIC ACID. [Concomitant]
     Active Substance: FOLIC ACID
     Dosage: 1 DOSAGE FORMS DAILY;
     Dates: start: 20150402
  9. AZOPT [Concomitant]
     Active Substance: BRINZOLAMIDE
     Dosage: 2 GTT DAILY; TO BOTH EYES
     Route: 047
     Dates: start: 20150722
  10. CALCEOS [Concomitant]
     Active Substance: CALCIUM CARBONATE\CHOLECALCIFEROL
     Dosage: 2 DOSAGE FORMS DAILY;
     Dates: start: 20141219
  11. COCODAMOL [Concomitant]
     Active Substance: ACETAMINOPHEN\CODEINE PHOSPHATE
     Indication: ANALGESIC THERAPY
     Dosage: UP TO 4 TIMES/DAY
     Dates: start: 20150402
  12. DOUBLEBASE [Concomitant]
     Active Substance: ISOPROPYL MYRISTATE\PARAFFIN
     Dosage: 2 DOSAGE FORMS DAILY;
     Dates: start: 20150402
  13. LETROZOLE. [Concomitant]
     Active Substance: LETROZOLE
     Dosage: 1 DOSAGE FORMS DAILY;
     Dates: start: 20150402

REACTIONS (2)
  - Dyspnoea [Recovered/Resolved]
  - Wheezing [Recovered/Resolved]

NARRATIVE: CASE EVENT DATE: 20150723
